FAERS Safety Report 9437561 (Version 1)
Quarter: 2013Q3

REPORT INFORMATION
  Report Type: Spontaneous
  Country: US (occurrence: US)
  Receive Date: 20130802
  Receipt Date: 20130802
  Transmission Date: 20140515
  Serious: Yes (Other)
  Sender: FDA-Public Use
  Company Number: US-SHIRE-ALL1-2013-05062

PATIENT
  Age: 17 Year
  Sex: Female

DRUGS (1)
  1. VYVANSE [Suspect]
     Indication: PRODUCT USED FOR UNKNOWN INDICATION
     Dosage: 130 MG, UNKNOWN (130 MG TOTAL DAILY DOSE)
     Route: 048
     Dates: start: 2007

REACTIONS (2)
  - Peripheral vascular disorder [Unknown]
  - Prescribed overdose [Unknown]
